FAERS Safety Report 11519310 (Version 3)
Quarter: 2015Q4

REPORT INFORMATION
  Report Type: Spontaneous
  Country: DE (occurrence: DE)
  Receive Date: 20150918
  Receipt Date: 20151029
  Transmission Date: 20160304
  Serious: Yes (Other)
  Sender: FDA-Public Use
  Company Number: DE-AMGEN-DEUSP2015095177

PATIENT
  Age: 77 Year
  Sex: Female

DRUGS (2)
  1. LUCENTIS [Suspect]
     Active Substance: RANIBIZUMAB
     Indication: MACULAR DEGENERATION
     Dosage: UNK
     Route: 065
     Dates: end: 201501
  2. PROLIA [Suspect]
     Active Substance: DENOSUMAB
     Indication: OSTEOPOROSIS POSTMENOPAUSAL
     Dosage: 60 MG (1 AMPOULE), Q6MO
     Route: 058
     Dates: start: 20131216, end: 20150109

REACTIONS (3)
  - Neovascular age-related macular degeneration [Unknown]
  - Weight increased [Recovered/Resolved]
  - Spondylolisthesis [Unknown]

NARRATIVE: CASE EVENT DATE: 2014
